FAERS Safety Report 9420204 (Version 1)
Quarter: 2013Q3

REPORT INFORMATION
  Report Type: Spontaneous
  Country: US (occurrence: US)
  Receive Date: 20130725
  Receipt Date: 20130725
  Transmission Date: 20140515
  Serious: Yes (Hospitalization, Other)
  Sender: FDA-Public Use
  Company Number: US-BAYER-2013-087382

PATIENT
  Age: 24 Year
  Sex: Female

DRUGS (14)
  1. YAZ [Suspect]
  2. YASMIN [Suspect]
  3. MECLIZINE [Concomitant]
     Dosage: 25 MG, UNK
     Dates: start: 20070501
  4. IBUPROFEN [Concomitant]
     Dosage: 600 MG, UNK
     Dates: start: 20070501
  5. XANAX [Concomitant]
     Dosage: 1 MG, UNK
     Dates: start: 20070531
  6. PHENERGAN [Concomitant]
     Indication: NAUSEA
     Dosage: 25 MG, UNK
     Dates: start: 20070628
  7. COMPAZINE [Concomitant]
     Indication: NAUSEA
     Dosage: 10 MG, UNK
  8. HYDROXYZINE [Concomitant]
     Dosage: 50 MG, UNK
     Route: 030
     Dates: start: 20070628
  9. CIPRO [Concomitant]
     Indication: CHOLECYSTITIS
     Dosage: 500 MG, UNK
     Dates: start: 20070703
  10. SYNTHROID [Concomitant]
     Indication: HYPOTHYROIDISM
     Dosage: 150 MCG
  11. METOPROLOL [Concomitant]
     Indication: VENTRICULAR EXTRASYSTOLES
     Dosage: 25 MG, UNK
  12. ACETAMINOPHEN W/CODEINE [Concomitant]
     Dosage: UNK
     Dates: start: 20070703
  13. NAPROSYN [Concomitant]
  14. FLEXERIL [Concomitant]

REACTIONS (2)
  - Cholecystitis [None]
  - Thrombophlebitis superficial [None]
